FAERS Safety Report 8347667-3 (Version None)
Quarter: 2012Q2

REPORT INFORMATION
  Report Type: 
  Country: None (occurrence: None)
  Receive Date: 20120509
  Receipt Date: 20120503
  Transmission Date: 20120825
  Serious: Yes (Disabling, Other)
  Sender: FDA-Public Use
  Company Number: US-MERCK-1103USA03603

PATIENT
  Age: 30 Year
  Sex: Male
  Weight: 82 kg

DRUGS (7)
  1. PROSCAR [Suspect]
     Route: 048
     Dates: end: 20080101
  2. PROSCAR [Suspect]
     Indication: ALOPECIA
     Route: 048
     Dates: start: 20010701, end: 20031001
  3. FINASTERIDE [Suspect]
     Indication: ANDROGENETIC ALOPECIA
     Route: 048
     Dates: start: 19990101
  4. PROPECIA [Suspect]
     Indication: ALOPECIA
     Route: 048
     Dates: start: 19990101
  5. PROSCAR [Suspect]
     Route: 048
     Dates: end: 20080101
  6. PROSCAR [Suspect]
     Indication: ANDROGENETIC ALOPECIA
     Route: 048
     Dates: start: 20010701, end: 20031001
  7. NIZORAL [Concomitant]
     Indication: SEBORRHOEIC DERMATITIS
     Route: 061
     Dates: start: 19940101, end: 20090101

REACTIONS (46)
  - URINARY INCONTINENCE [None]
  - SYSTEMIC CANDIDA [None]
  - ANDROGEN DEFICIENCY [None]
  - LIBIDO DECREASED [None]
  - MELANOCYTIC NAEVUS [None]
  - ECZEMA [None]
  - PARAESTHESIA [None]
  - HEADACHE [None]
  - PERINEAL PAIN [None]
  - PENIS DISORDER [None]
  - SEMEN VOLUME DECREASED [None]
  - PENILE PAIN [None]
  - INFECTION PARASITIC [None]
  - NOREPINEPHRINE INCREASED [None]
  - OTITIS MEDIA [None]
  - ANXIETY [None]
  - PANIC ATTACK [None]
  - CERUMEN IMPACTION [None]
  - DIHYDROTESTOSTERONE DECREASED [None]
  - ASTHENIA [None]
  - GASTROINTESTINAL DISORDER [None]
  - BLOOD TESTOSTERONE DECREASED [None]
  - IRRITABLE BOWEL SYNDROME [None]
  - SEXUAL DYSFUNCTION [None]
  - DYSURIA [None]
  - DIVERTICULUM [None]
  - FACE INJURY [None]
  - BRUXISM [None]
  - TOOTH DISORDER [None]
  - HERPES VIRUS INFECTION [None]
  - PROSTATITIS [None]
  - DENTAL DISCOMFORT [None]
  - ENZYME ABNORMALITY [None]
  - WRONG TECHNIQUE IN DRUG USAGE PROCESS [None]
  - UPPER RESPIRATORY TRACT INFECTION [None]
  - HORMONE LEVEL ABNORMAL [None]
  - INTENTIONAL DRUG MISUSE [None]
  - SPERMATOZOA PROGRESSIVE MOTILITY DECREASED [None]
  - RASH [None]
  - COELIAC DISEASE [None]
  - HYPOTHYROIDISM [None]
  - INSOMNIA [None]
  - ARTERIAL OCCLUSIVE DISEASE [None]
  - FATIGUE [None]
  - PERIPHERAL SENSORY NEUROPATHY [None]
  - VIRAL INFECTION [None]
